FAERS Safety Report 4956413-2 (Version None)
Quarter: 2006Q1

REPORT INFORMATION
  Report Type: 
  Country: None (occurrence: None)
  Receive Date: 20060329
  Receipt Date: 20060315
  Transmission Date: 20060701
  Serious: Yes (Hospitalization, Other)
  Sender: FDA-Public Use
  Company Number: 2006UW05230

PATIENT
  Age: 59 Year
  Sex: Female

DRUGS (1)
  1. NOLVADEX [Suspect]
     Indication: BREAST CANCER
     Route: 048
     Dates: start: 20011101, end: 20011201

REACTIONS (3)
  - ABDOMINAL PAIN [None]
  - DRUG INTOLERANCE [None]
  - HYPOTENSION [None]
